FAERS Safety Report 10367995 (Version 1)
Quarter: 2014Q3

REPORT INFORMATION
  Report Type: Report from Study
  Country: BR (occurrence: BR)
  Receive Date: 20140807
  Receipt Date: 20140807
  Transmission Date: 20150326
  Serious: Yes (Hospitalization, Other)
  Sender: FDA-Public Use
  Company Number: BR-ROCHE-1446363

PATIENT
  Age: 65 Year
  Sex: Female
  Weight: 80 kg

DRUGS (7)
  1. MABTHERA [Suspect]
     Active Substance: RITUXIMAB
     Indication: RHEUMATOID ARTHRITIS
     Route: 065
     Dates: start: 20140115
  2. SUPREMA [Concomitant]
     Active Substance: ESTRADIOL\NORETHINDRONE ACETATE
  3. INSULIN [Concomitant]
     Active Substance: INSULIN NOS
  4. GLIFAGE [Concomitant]
     Active Substance: METFORMIN HYDROCHLORIDE
  5. ENDOFOLIN [Concomitant]
     Active Substance: FOLIC ACID
  6. DIAMICRON [Concomitant]
     Active Substance: GLICLAZIDE
  7. METHOTREXATE [Concomitant]
     Active Substance: METHOTREXATE

REACTIONS (4)
  - Conjunctivitis bacterial [Recovering/Resolving]
  - Diabetes mellitus [Unknown]
  - Sinusitis [Unknown]
  - Dengue fever [Unknown]

NARRATIVE: CASE EVENT DATE: 20140726
